FAERS Safety Report 11937098 (Version 2)
Quarter: 2022Q3

REPORT INFORMATION
  Report Type: Spontaneous
  Country: FR (occurrence: FR)
  Receive Date: 20160121
  Receipt Date: 20220912
  Transmission Date: 20221027
  Serious: Yes (Hospitalization, Other)
  Sender: FDA-Public Use
  Company Number: FRCADENCE2013CP000001

PATIENT
  Age: 9 Year
  Sex: Female

DRUGS (12)
  1. OFIRMEV [Suspect]
     Active Substance: ACETAMINOPHEN
     Indication: Pyrexia
     Route: 042
     Dates: start: 20120924, end: 20120925
  2. AMIKACIN SULFATE [Suspect]
     Active Substance: AMIKACIN SULFATE
     Indication: Abscess
     Dosage: UNK
     Route: 065
     Dates: start: 20121002, end: 20121004
  3. OXACILLIN SODIUM [Suspect]
     Active Substance: OXACILLIN SODIUM
     Indication: Abscess
     Dosage: UNK
     Route: 065
     Dates: start: 20121005, end: 20121011
  4. OXACILLIN SODIUM [Suspect]
     Active Substance: OXACILLIN SODIUM
     Indication: Mediastinal abscess
  5. CODEINE [Suspect]
     Active Substance: CODEINE
     Indication: Pain
     Dosage: 1DF:1MG/ML SYRUP
     Route: 065
     Dates: start: 20120924, end: 20120925
  6. COLCHICINE [Suspect]
     Active Substance: COLCHICINE
     Indication: Pericarditis
     Dosage: UNK
     Route: 048
     Dates: start: 20121002, end: 20121024
  7. CLINDAMYCIN HYDROCHLORIDE [Suspect]
     Active Substance: CLINDAMYCIN HYDROCHLORIDE
     Indication: Abscess
     Dosage: UNK
     Route: 065
     Dates: start: 20121002, end: 20121024
  8. CLINDAMYCIN HYDROCHLORIDE [Suspect]
     Active Substance: CLINDAMYCIN HYDROCHLORIDE
     Indication: Mediastinal abscess
  9. AUGMENTIN [Suspect]
     Active Substance: AMOXICILLIN\CLAVULANATE POTASSIUM
     Indication: Mediastinal abscess
     Dosage: UNK
     Route: 048
     Dates: start: 20121002, end: 20121005
  10. AUGMENTIN [Suspect]
     Active Substance: AMOXICILLIN\CLAVULANATE POTASSIUM
     Indication: Abscess
  11. CLOXACILLIN SODIUM [Suspect]
     Active Substance: CLOXACILLIN SODIUM
     Indication: Abscess
     Dosage: UNK
     Route: 065
     Dates: start: 20121011, end: 20121024
  12. RIFAMPIN [Suspect]
     Active Substance: RIFAMPIN
     Indication: Abscess
     Dosage: UNK
     Route: 065
     Dates: start: 20121025, end: 20121029

REACTIONS (1)
  - Drug reaction with eosinophilia and systemic symptoms [Recovered/Resolved]

NARRATIVE: CASE EVENT DATE: 20121025
